FAERS Safety Report 24760440 (Version 2)
Quarter: 2024Q4

REPORT INFORMATION
  Report Type: Spontaneous
  Country: FR (occurrence: FR)
  Receive Date: 20241220
  Receipt Date: 20241230
  Transmission Date: 20250115
  Serious: Yes (Other)
  Sender: SANDOZ
  Company Number: FR-002147023-NVSC2022FR012827

PATIENT
  Age: 23 Year
  Sex: Male

DRUGS (40)
  1. CYCLOPHOSPHAMIDE [Suspect]
     Active Substance: CYCLOPHOSPHAMIDE
     Indication: Susac^s syndrome
     Dosage: 12 CYCLES
     Route: 065
     Dates: start: 2017, end: 2018
  2. CYCLOPHOSPHAMIDE [Suspect]
     Active Substance: CYCLOPHOSPHAMIDE
     Dosage: 12 CYCLES
     Route: 065
     Dates: start: 2009, end: 2010
  3. CYCLOPHOSPHAMIDE [Suspect]
     Active Substance: CYCLOPHOSPHAMIDE
     Dosage: 12 CYCLES
     Route: 065
     Dates: start: 2009, end: 2010
  4. CYCLOPHOSPHAMIDE [Suspect]
     Active Substance: CYCLOPHOSPHAMIDE
     Dosage: 12 CYCLES
     Route: 065
     Dates: start: 2009, end: 2010
  5. CYCLOPHOSPHAMIDE [Suspect]
     Active Substance: CYCLOPHOSPHAMIDE
     Dosage: 12 CYCLES
     Route: 065
     Dates: start: 2009, end: 2010
  6. CYCLOPHOSPHAMIDE [Suspect]
     Active Substance: CYCLOPHOSPHAMIDE
     Dosage: 12 CYCLES
     Route: 065
     Dates: start: 2009, end: 2010
  7. CYCLOPHOSPHAMIDE [Suspect]
     Active Substance: CYCLOPHOSPHAMIDE
     Dosage: 12 CYCLES
     Route: 065
     Dates: start: 2009, end: 2010
  8. CYCLOPHOSPHAMIDE [Suspect]
     Active Substance: CYCLOPHOSPHAMIDE
     Dosage: 12 CYCLES
     Route: 065
     Dates: start: 2009, end: 2010
  9. CYCLOPHOSPHAMIDE [Suspect]
     Active Substance: CYCLOPHOSPHAMIDE
     Dosage: 12 CYCLES
     Route: 065
     Dates: start: 2017, end: 2018
  10. CYCLOPHOSPHAMIDE [Suspect]
     Active Substance: CYCLOPHOSPHAMIDE
     Dosage: 12 CYCLES
     Route: 065
     Dates: start: 2017, end: 2018
  11. CYCLOPHOSPHAMIDE [Suspect]
     Active Substance: CYCLOPHOSPHAMIDE
     Dosage: 12 CYCLES
     Route: 065
     Dates: start: 2017, end: 2018
  12. CYCLOPHOSPHAMIDE [Suspect]
     Active Substance: CYCLOPHOSPHAMIDE
     Dosage: 12 CYCLES
     Route: 065
     Dates: start: 2017, end: 2018
  13. CYCLOPHOSPHAMIDE [Suspect]
     Active Substance: CYCLOPHOSPHAMIDE
     Dosage: 12 CYCLES
     Route: 065
     Dates: start: 2017, end: 2018
  14. CYCLOPHOSPHAMIDE [Suspect]
     Active Substance: CYCLOPHOSPHAMIDE
     Dosage: 12 CYCLES
     Route: 065
     Dates: start: 2017, end: 2018
  15. IMURAN [Suspect]
     Active Substance: AZATHIOPRINE
     Indication: Susac^s syndrome
     Dosage: 150.000MG QD
     Route: 065
     Dates: start: 2018, end: 2019
  16. IMURAN [Suspect]
     Active Substance: AZATHIOPRINE
     Dosage: 150.000MG QD
     Route: 065
     Dates: start: 2018, end: 2019
  17. IMURAN [Suspect]
     Active Substance: AZATHIOPRINE
     Dosage: 150.000MG QD
     Route: 065
     Dates: start: 2018, end: 2019
  18. IMURAN [Suspect]
     Active Substance: AZATHIOPRINE
     Dosage: 150.000MG QD
     Route: 065
     Dates: start: 2018, end: 2019
  19. IMURAN [Suspect]
     Active Substance: AZATHIOPRINE
     Dosage: 150.000MG QD
     Route: 065
     Dates: start: 2018, end: 2019
  20. IMURAN [Suspect]
     Active Substance: AZATHIOPRINE
     Dosage: 150.000MG QD
     Route: 065
     Dates: start: 2018, end: 2019
  21. IMURAN [Suspect]
     Active Substance: AZATHIOPRINE
     Dosage: 150.000MG QD
     Route: 065
     Dates: start: 2018, end: 2019
  22. MYCOPHENOLATE MOFETIL [Suspect]
     Active Substance: MYCOPHENOLATE MOFETIL
     Indication: Susac^s syndrome
     Dosage: 1.000G QD
     Route: 065
     Dates: start: 2010, end: 2017
  23. MYCOPHENOLATE MOFETIL [Suspect]
     Active Substance: MYCOPHENOLATE MOFETIL
     Dosage: 1.000G QD
     Route: 065
     Dates: start: 2010, end: 2017
  24. MYCOPHENOLATE MOFETIL [Suspect]
     Active Substance: MYCOPHENOLATE MOFETIL
     Dosage: 1.000G QD
     Route: 065
     Dates: start: 2010, end: 2017
  25. MYCOPHENOLATE MOFETIL [Suspect]
     Active Substance: MYCOPHENOLATE MOFETIL
     Dosage: 1.000G QD
     Route: 065
     Dates: start: 2010, end: 2017
  26. MYCOPHENOLATE MOFETIL [Suspect]
     Active Substance: MYCOPHENOLATE MOFETIL
     Dosage: 1.000G QD
     Route: 065
     Dates: start: 2010, end: 2017
  27. MYCOPHENOLATE MOFETIL [Suspect]
     Active Substance: MYCOPHENOLATE MOFETIL
     Dosage: 1.000G QD
     Route: 065
     Dates: start: 2010, end: 2017
  28. MYCOPHENOLATE MOFETIL [Suspect]
     Active Substance: MYCOPHENOLATE MOFETIL
     Dosage: 1.000G QD
     Route: 065
     Dates: start: 2010, end: 2017
  29. RITUXIMAB [Suspect]
     Active Substance: RITUXIMAB
     Indication: Susac^s syndrome
     Dosage: 1 G, EVERY 6 MONTHS
     Route: 065
     Dates: start: 2019, end: 2020
  30. TOCILIZUMAB [Suspect]
     Active Substance: TOCILIZUMAB
     Indication: Susac^s syndrome
     Dosage: 600.000MG
     Route: 065
     Dates: start: 2020, end: 2021
  31. INFLIXIMAB [Concomitant]
     Active Substance: INFLIXIMAB
     Indication: Susac^s syndrome
     Dosage: 5.000MG/KG
     Route: 065
     Dates: start: 2021
  32. INFLIXIMAB [Concomitant]
     Active Substance: INFLIXIMAB
     Dosage: 5.000MG/KG
     Route: 065
     Dates: start: 2021
  33. INFLIXIMAB [Concomitant]
     Active Substance: INFLIXIMAB
     Dosage: 5.000MG/KG
     Route: 065
     Dates: start: 2021
  34. INFLIXIMAB [Concomitant]
     Active Substance: INFLIXIMAB
     Dosage: 5.000MG/KG
     Route: 065
     Dates: start: 2021
  35. INFLIXIMAB [Concomitant]
     Active Substance: INFLIXIMAB
     Dosage: 5.000MG/KG
     Route: 065
     Dates: start: 2021
  36. INFLIXIMAB [Concomitant]
     Active Substance: INFLIXIMAB
     Dosage: 5.000MG/KG
     Route: 065
     Dates: start: 2021
  37. INFLIXIMAB [Concomitant]
     Active Substance: INFLIXIMAB
     Dosage: 5.000MG/KG
     Route: 065
     Dates: start: 2021
  38. INFLIXIMAB [Concomitant]
     Active Substance: INFLIXIMAB
     Dosage: 5.000MG/KG
     Route: 065
     Dates: start: 2021
  39. INFLIXIMAB [Concomitant]
     Active Substance: INFLIXIMAB
     Dosage: UNK
     Route: 065
     Dates: start: 2021
  40. INFLIXIMAB [Concomitant]
     Active Substance: INFLIXIMAB
     Dosage: UNK
     Route: 065
     Dates: start: 2021

REACTIONS (7)
  - Susac^s syndrome [Unknown]
  - Condition aggravated [Unknown]
  - Neoplasm [Unknown]
  - Nervous system disorder [Unknown]
  - Disease progression [Unknown]
  - Product use in unapproved indication [Unknown]
  - Drug ineffective [Unknown]
